FAERS Safety Report 6216095-9 (Version None)
Quarter: 2009Q2

REPORT INFORMATION
  Report Type: 
  Country: None (occurrence: None)
  Receive Date: 20090605
  Receipt Date: 20090525
  Transmission Date: 20091009
  Serious: Yes (Hospitalization)
  Sender: FDA-Public Use
  Company Number: JP-JNJFOC-20090106344

PATIENT
  Sex: Female
  Weight: 48 kg

DRUGS (21)
  1. RISPERDAL [Suspect]
     Route: 048
  2. RISPERDAL [Suspect]
     Route: 048
  3. RISPERDAL [Suspect]
     Route: 048
  4. RISPERDAL [Suspect]
     Route: 048
  5. RISPERDAL [Suspect]
     Route: 048
  6. RISPERDAL [Suspect]
     Route: 048
  7. RISPERDAL [Suspect]
     Route: 048
  8. RISPERDAL [Suspect]
     Indication: SCHIZOPHRENIA, PARANOID TYPE
     Route: 048
  9. RISPERDAL [Suspect]
     Route: 048
  10. RISPERDAL [Suspect]
     Route: 048
  11. RISPERDAL [Suspect]
     Route: 048
  12. RISPERDAL [Suspect]
     Route: 048
  13. OXYBUTYNIN CHLORIDE [Concomitant]
     Route: 048
  14. SLOWHEIM [Concomitant]
     Indication: INSOMNIA
     Route: 048
  15. SENNARIDE [Concomitant]
     Route: 048
  16. SENNARIDE [Concomitant]
     Route: 048
  17. SENNARIDE [Concomitant]
     Indication: CONSTIPATION
     Route: 048
  18. BIPERIDEN HYDROCHLORIDE TAB [Concomitant]
     Indication: TORTICOLLIS
     Route: 048
  19. CYSVON [Concomitant]
     Route: 048
  20. ALOTEC [Concomitant]
     Indication: ADAMS-STOKES SYNDROME
     Route: 048
  21. BENZALIN [Concomitant]
     Indication: INSOMNIA

REACTIONS (3)
  - URINARY RETENTION [None]
  - URINARY TRACT INFECTION [None]
  - WHITE BLOOD CELL COUNT DECREASED [None]
